FAERS Safety Report 4347780-1 (Version None)
Quarter: 2004Q1

REPORT INFORMATION
  Report Type: 
  Country: None (occurrence: None)
  Receive Date: 20040325
  Receipt Date: 20031212
  Transmission Date: 20041129
  Serious: No
  Sender: FDA-Public Use
  Company Number: USA031254608

PATIENT
  Age: 82 Year
  Sex: Female

DRUGS (10)
  1. FORTEO [Suspect]
     Indication: OSTEOPOROSIS
     Dates: start: 20030801
  2. PERMAX [Concomitant]
  3. DIOVAN [Concomitant]
  4. PLAVIX [Concomitant]
  5. NEXIUM [Concomitant]
  6. LIPITOR [Concomitant]
  7. BEXTRA [Concomitant]
  8. ISOSORBIDE [Concomitant]
  9. CALTRATE (CALCIUM CARBONATE) [Concomitant]
  10. QUININE [Concomitant]

REACTIONS (4)
  - ARTHRALGIA [None]
  - CHEST WALL PAIN [None]
  - MUSCLE CRAMP [None]
  - PAIN [None]
